FAERS Safety Report 15546092 (Version 1)
Quarter: 2018Q4

REPORT INFORMATION
  Report Type: Spontaneous
  Country: BG (occurrence: BG)
  Receive Date: 20181024
  Receipt Date: 20181024
  Transmission Date: 20190205
  Serious: Yes (Death)
  Sender: FDA-Public Use
  Company Number: PHHY2018BG135771

PATIENT
  Age: 19 Year
  Sex: Male
  Weight: 75 kg

DRUGS (2)
  1. ALCOHOL. [Concomitant]
     Active Substance: ALCOHOL
     Indication: PRODUCT USED FOR UNKNOWN INDICATION
     Route: 065
  2. EXJADE [Suspect]
     Active Substance: DEFERASIROX
     Indication: THALASSAEMIA
     Dosage: 25 MG/KG, UNK
     Route: 048
     Dates: start: 2010, end: 201807

REACTIONS (1)
  - Cardiac failure [Fatal]
